FAERS Safety Report 7324762-9 (Version None)
Quarter: 2011Q1

REPORT INFORMATION
  Report Type: 
  Country: None (occurrence: None)
  Receive Date: 20110301
  Receipt Date: 20110223
  Transmission Date: 20110831
  Serious: Yes (Hospitalization, Other)
  Sender: FDA-Public Use
  Company Number: US-PFIZER INC-2011040263

PATIENT
  Sex: Male
  Weight: 91 kg

DRUGS (16)
  1. LIPITOR [Suspect]
     Indication: BLOOD CHOLESTEROL INCREASED
     Dosage: 40 MG, ONCE A DAY
     Route: 048
     Dates: start: 20040101
  2. TAMSULOSIN [Concomitant]
     Dosage: UNK
  3. TOPROL-XL [Concomitant]
     Dosage: UNK
  4. VITAMIN D [Concomitant]
     Dosage: UNK
  5. HYDROCODONE [Concomitant]
     Dosage: UNK
  6. LASIX [Concomitant]
     Dosage: UNK
  7. RHINOCORT [Concomitant]
     Dosage: UNK
  8. AZOPT [Concomitant]
     Dosage: UNK
  9. XALATAN [Suspect]
     Indication: GLAUCOMA
     Dosage: 0.005 %, 1 DROP IN LEFT EYE
     Route: 047
     Dates: start: 19950101
  10. PREDNISONE [Concomitant]
     Dosage: UNK
  11. LISINOPRIL [Concomitant]
     Dosage: UNK
  12. COMBIGAN [Concomitant]
     Dosage: UNK
  13. ADVAIR DISKUS 100/50 [Concomitant]
     Dosage: UNK
  14. LORAZEPAM [Concomitant]
     Dosage: UNK
  15. VENTOLIN [Concomitant]
     Dosage: UNK
  16. POTASSIUM [Concomitant]
     Dosage: UNK

REACTIONS (2)
  - EYE EXCISION [None]
  - ASTHMA [None]
